FAERS Safety Report 8814624 (Version 1)
Quarter: 2012Q4

REPORT INFORMATION
  Report Type: Spontaneous
  Country: US (occurrence: None)
  Receive Date: 20120927
  Receipt Date: 20120927
  Transmission Date: 20130627
  Serious: Yes (Hospitalization)
  Sender: FDA-Public Use
  Company Number: None

PATIENT
  Sex: Male
  Weight: 85.82 kg

DRUGS (5)
  1. SUNITINIB MALATE [Suspect]
  2. COMPAZINE [Concomitant]
  3. NASONEX [Concomitant]
  4. PRILOSEC [Concomitant]
  5. XANAX [Concomitant]

REACTIONS (1)
  - Pericardial effusion [None]
